FAERS Safety Report 16099933 (Version 1)
Quarter: 2019Q1

REPORT INFORMATION
  Report Type: Spontaneous
  Country: US (occurrence: US)
  Receive Date: 20190218
  Receipt Date: 20190218
  Transmission Date: 20190418
  Serious: No
  Sender: FDA-Public Use
  Company Number: None

PATIENT
  Age: 59 Year
  Sex: Female

DRUGS (4)
  1. LAMICTAL [Concomitant]
     Active Substance: LAMOTRIGINE
  2. KEPPRA [Concomitant]
     Active Substance: LEVETIRACETAM
  3. COMPAZINE [Concomitant]
     Active Substance: PROCHLORPERAZINE MALEATE
  4. TEMOZOLOMIDE 140MG CAP [Suspect]
     Active Substance: TEMOZOLOMIDE
     Route: 048
     Dates: start: 201901

REACTIONS (1)
  - Nausea [None]

NARRATIVE: CASE EVENT DATE: 20190218
